FAERS Safety Report 8992468 (Version 1)
Quarter: 2012Q4

REPORT INFORMATION
  Report Type: 
  Country: ES (occurrence: ES)
  Receive Date: 20121231
  Receipt Date: 20121231
  Transmission Date: 20130627
  Serious: Yes (Other)
  Sender: FDA-Public Use
  Company Number: ES-ELI_LILLY_AND_COMPANY-ES201212006536

PATIENT
  Age: 64 Year
  Sex: Female

DRUGS (1)
  1. FORSTEO [Suspect]
     Dosage: 20 ug, qd
     Route: 058
     Dates: start: 20121108

REACTIONS (1)
  - Device related infection [Not Recovered/Not Resolved]
